FAERS Safety Report 24614489 (Version 1)
Quarter: 2024Q4

REPORT INFORMATION
  Report Type: Report from Study
  Country: GB (occurrence: GB)
  Receive Date: 20241113
  Receipt Date: 20241113
  Transmission Date: 20250115
  Serious: No
  Sender: JOHNSON AND JOHNSON
  Company Number: GB-JNJFOC-20241103178

PATIENT
  Age: 5 Decade
  Sex: Male

DRUGS (6)
  1. TREMFYA [Suspect]
     Active Substance: GUSELKUMAB
     Indication: Psoriasis
     Route: 058
     Dates: start: 20240219
  2. DULOXETINE [Concomitant]
     Active Substance: DULOXETINE
  3. ALOGLIPTIN [Concomitant]
     Active Substance: ALOGLIPTIN
  4. AMLODIPINE [Concomitant]
     Active Substance: AMLODIPINE BESYLATE
  5. RAMIPRIL [Concomitant]
     Active Substance: RAMIPRIL
  6. METFORMIN [Concomitant]
     Active Substance: METFORMIN HYDROCHLORIDE

REACTIONS (2)
  - Needle issue [Unknown]
  - Product dose omission issue [Unknown]

NARRATIVE: CASE EVENT DATE: 20241029
